FAERS Safety Report 8599926 (Version 4)
Quarter: 2013Q3

REPORT INFORMATION
  Report Type: Spontaneous
  Country: DK (occurrence: JP)
  Receive Date: 20120605
  Receipt Date: 20130712
  Transmission Date: 20140515
  Serious: Yes (Hospitalization)
  Sender: FDA-Public Use
  Company Number: JP-FRI-1000030944

PATIENT
  Age: 63 Year
  Sex: Male

DRUGS (3)
  1. LEXAPRO [Suspect]
     Indication: DEPRESSION
     Dosage: 10 MG
     Route: 048
     Dates: start: 20120319, end: 20120518
  2. LANDSEN [Concomitant]
     Indication: DEPRESSION
     Dosage: 2 MG
     Route: 048
     Dates: end: 20120518
  3. NIZATIDINE [Concomitant]
     Indication: GASTRITIS
     Dosage: 75 MG
     Route: 048
     Dates: end: 20120518

REACTIONS (5)
  - Convulsion [Unknown]
  - Hallucination [Unknown]
  - Paranoia [Unknown]
  - Epileptic psychosis [Unknown]
  - Insomnia [Unknown]
